FAERS Safety Report 5314307-7 (Version None)
Quarter: 2007Q2

REPORT INFORMATION
  Report Type: 
  Country: None (occurrence: None)
  Receive Date: 20070425
  Receipt Date: 20070307
  Transmission Date: 20071010
  Serious: Yes (Other)
  Sender: FDA-Public Use
  Company Number: 2007PV000008

PATIENT
  Age: 70 Year
  Sex: Female
  Weight: 67 kg

DRUGS (5)
  1. DEPODUR [Suspect]
     Indication: PAIN
     Dosage: 15 MG; X1; ED
     Route: 008
     Dates: start: 20061201, end: 20061201
  2. VERSED [Concomitant]
  3. FENTANYL [Concomitant]
  4. PROPOFOL [Concomitant]
  5. HYDROCODONE BITARTRATE + ACETAMINOPHEN [Concomitant]

REACTIONS (10)
  - ARTHRALGIA [None]
  - CONFUSIONAL STATE [None]
  - HYPOVENTILATION [None]
  - IATROGENIC INJURY [None]
  - INCORRECT ROUTE OF DRUG ADMINISTRATION [None]
  - LOSS OF CONSCIOUSNESS [None]
  - RESPIRATORY DEPRESSION [None]
  - RESPIRATORY DISORDER [None]
  - RESPIRATORY DISTRESS [None]
  - WRONG TECHNIQUE IN DRUG USAGE PROCESS [None]
